FAERS Safety Report 7864523-5 (Version None)
Quarter: 2011Q4

REPORT INFORMATION
  Report Type: 
  Country: None (occurrence: None)
  Receive Date: 20111028
  Receipt Date: 20111024
  Transmission Date: 20120403
  Serious: Yes (Hospitalization, Other)
  Sender: FDA-Public Use
  Company Number: US-PFIZER INC-2011143855

PATIENT
  Sex: Female

DRUGS (4)
  1. CHANTIX [Suspect]
     Indication: SMOKING CESSATION THERAPY
     Dosage: STARTER PACK AND CONTINUING PACK
     Dates: start: 20081006, end: 20081206
  2. CHANTIX [Suspect]
     Dosage: CONTINUING PACK
     Dates: start: 20090606, end: 20090706
  3. AMBIEN [Concomitant]
     Indication: INSOMNIA
     Dosage: UNK
     Dates: start: 20070101, end: 20110101
  4. CHANTIX [Suspect]
     Dosage: CONTINUING PACK
     Dates: start: 20090112, end: 20090312

REACTIONS (3)
  - CONVULSION [None]
  - INSOMNIA [None]
  - DEPRESSION [None]
